FAERS Safety Report 6290060-8 (Version None)
Quarter: 2009Q3

REPORT INFORMATION
  Report Type: 
  Country: None (occurrence: None)
  Receive Date: 20090730
  Receipt Date: 20090522
  Transmission Date: 20100115
  Serious: No
  Sender: FDA-Public Use
  Company Number: US-BRISTOL-MYERS SQUIBB COMPANY-14396592

PATIENT
  Age: 89 Year
  Sex: Male
  Weight: 76 kg

DRUGS (9)
  1. COUMADIN [Suspect]
     Indication: CORONARY ARTERY BYPASS
     Dosage: DOSE VALUE:1MG/D;SOMETIMES:1.5MG/D;RARELY:2MG/D.
  2. COUMADIN [Suspect]
     Indication: CARDIOVASCULAR DISORDER
     Dosage: DOSE VALUE:1MG/D;SOMETIMES:1.5MG/D;RARELY:2MG/D.
  3. COUMADIN [Suspect]
     Indication: COAGULATION TIME
     Dosage: DOSE VALUE:1MG/D;SOMETIMES:1.5MG/D;RARELY:2MG/D.
  4. TENORMIN [Concomitant]
  5. LANOXIN [Concomitant]
  6. ALLOPURINOL [Concomitant]
  7. ISOSORBIDE DINITRATE [Concomitant]
  8. LASIX [Concomitant]
  9. VASOTEC [Concomitant]

REACTIONS (2)
  - DRUG INEFFECTIVE [None]
  - INTERNATIONAL NORMALISED RATIO DECREASED [None]
